FAERS Safety Report 9933900 (Version 1)
Quarter: 2014Q1

REPORT INFORMATION
  Report Type: Spontaneous
  Country: GB (occurrence: None)
  Receive Date: 20140226
  Receipt Date: 20140226
  Transmission Date: 20141002
  Serious: Yes (Hospitalization)
  Sender: FDA-Public Use
  Company Number: AUR-APL-2014-01621

PATIENT
  Age: 82 Year
  Sex: Female

DRUGS (19)
  1. AMOXICILLIN [Suspect]
     Indication: LOWER RESPIRATORY TRACT INFECTION
     Dates: start: 20131023
  2. CLARITHROMYCIN [Suspect]
     Indication: LOWER RESPIRATORY TRACT INFECTION
     Dates: start: 20130130
  3. PREDNISOLONE [Suspect]
     Indication: LOWER RESPIRATORY TRACT INFECTION
     Dates: start: 20131023
  4. WARFARIN [Suspect]
     Indication: PRODUCT USED FOR UNKNOWN INDICATION
     Route: 048
     Dates: start: 19740401
  5. ALLOPURINOL (ALLOPURINOL) [Concomitant]
  6. AMITRIPTYLINE HYDROCHLORIDE (AMITRIPTYLINE HYDROCHLORIDE) (TABLET) (AMITRIPTYLINE HYDROCHLORIDE) [Concomitant]
  7. ATORVASTATIN (ATORVASTATIN) [Concomitant]
  8. BRICANYL (TERBUTALINE SULFATE) [Concomitant]
  9. CETRABEN (PARAFFIN) [Concomitant]
  10. CO-AMILOFRUSE (FRUMIL) [Concomitant]
  11. METFORMIN HYDROCHLORIDE (METFORMIN HYDROCHLORIDE) [Concomitant]
  12. MONTELUKAST SODIUM(MONTELUKAST SODIUM) [Concomitant]
  13. OMEPRAZOLE (OMEPRAZOLE) [Concomitant]
  14. ORAMORPH (MORPHINE SULFATE PENTAHYDRATE) [Concomitant]
  15. PARACETAMOL (PARACETAMOL) [Concomitant]
  16. PROCHLORPERAZINE MALEATE (PROCHLORPERAZINE MALEATE) [Concomitant]
  17. QUININE SULFATE (QUININE SULFATE) [Concomitant]
  18. SYMBICORT (BUDESONIDE W/FORMOTEROL FUMARATE) [Concomitant]
  19. TAMOXIFEN (TAMOXIFEN) [Concomitant]

REACTIONS (3)
  - International normalised ratio increased [None]
  - Drug interaction [None]
  - Malaise [None]
